FAERS Safety Report 20505462 (Version 2)
Quarter: 2022Q1

REPORT INFORMATION
  Report Type: Other
  Country: GB (occurrence: GB)
  Receive Date: 20220223
  Receipt Date: 20220307
  Transmission Date: 20220423
  Serious: Yes (Hospitalization, Other)
  Sender: FDA-Public Use
  Company Number: None

PATIENT
  Age: 16 Year
  Sex: Female
  Weight: 57.2 kg

DRUGS (121)
  1. AZATHIOPRINE [Suspect]
     Active Substance: AZATHIOPRINE
     Indication: Crohn^s disease
     Dosage: 100 MG PER DAY
     Route: 048
     Dates: start: 20121011, end: 20181011
  2. AZATHIOPRINE [Suspect]
     Active Substance: AZATHIOPRINE
     Dosage: 100 MILLIGRAM, QD
     Route: 048
     Dates: start: 20121011, end: 20181011
  3. METRONIDAZOLE [Suspect]
     Active Substance: METRONIDAZOLE
     Indication: Crohn^s disease
     Dosage: UNK
     Route: 065
     Dates: start: 20190225, end: 20190228
  4. CIPROFLOXACIN [Suspect]
     Active Substance: CIPROFLOXACIN
     Indication: Crohn^s disease
     Dosage: UNK
     Route: 065
     Dates: start: 20190225, end: 20190228
  5. METHOTREXATE [Suspect]
     Active Substance: METHOTREXATE
     Indication: Crohn^s disease
     Dosage: 22.5 MILLIGRAM, ONCE A WEEK, (START DATE: 11-OCT-2012, STOP DATE: 14-JUN-2019)
     Route: 048
  6. METHOTREXATE [Suspect]
     Active Substance: METHOTREXATE
     Dosage: 22.5 MILLIGRAM, EVERY WEEK (START DATE: 25-SEP-2017)
     Route: 048
  7. METHOTREXATE [Suspect]
     Active Substance: METHOTREXATE
     Dosage: 22.5 MILLIGRAM, EVERY WEEK (START DATE: 18-OCT-2018)
     Route: 048
  8. METHOTREXATE [Suspect]
     Active Substance: METHOTREXATE
     Dosage: 22.5 MILLIGRAM, ONCE A WEEK (START DATE: 28 JUN 2019, STOP DATE: 28 MAR 2020)
     Route: 048
  9. METHOTREXATE [Suspect]
     Active Substance: METHOTREXATE
     Dosage: 22.5 MILLIGRAM, ONCE A WEEK (START DATE: 18-APR-2020)
     Route: 048
  10. METHOTREXATE [Suspect]
     Active Substance: METHOTREXATE
     Dosage: 22.5 MILLIGRAM, ONCE A WEEK (START DATE: 11-OCT-2012, STOP DATE: 14-JUN-2019)
     Route: 065
  11. METHOTREXATE [Suspect]
     Active Substance: METHOTREXATE
     Dosage: 22.5 MILLIGRAM, ONCE A WEEK (CUMULATIVE DOSE TO FIRST REACTION: 1710.0 MG) (START DATE: 18-OCT-2018)
     Route: 065
  12. METHOTREXATE [Suspect]
     Active Substance: METHOTREXATE
     Dosage: 22.5 MILLIGRAM, ONCE A WEEK (CUMULATIVE DOSE TO FIRST REACTION: 51.42857 MG) (START DATE: 18-APR-202
     Route: 065
  13. METHOTREXATE [Suspect]
     Active Substance: METHOTREXATE
     Dosage: 22.5 MILLIGRAM, ONCE A WEEK (CUMULATIVE DOSE TO FIRST REACTION: 896.7857 MG) (START DATE: 28-JUN-201
     Route: 065
  14. HUMIRA [Suspect]
     Active Substance: ADALIMUMAB
     Indication: Crohn^s disease
     Dosage: 40 MILLIGRAM, EVERY 2 WEEK (START DATE: 09-DEC-2013, STOP DATE: 30-APR-2018)
     Route: 058
  15. HUMIRA [Suspect]
     Active Substance: ADALIMUMAB
     Dosage: 40 MILLIGRAM, EVERY WEEK (START DATE: 09-DEC-2013, STOP DATE: 08-APR-2019)
     Route: 058
  16. HUMIRA [Suspect]
     Active Substance: ADALIMUMAB
     Dosage: 40 MILLIGRAM, EVERY WEEK (START DATE: 28-JUN-2019, STOP DATE: 25-MAR-2019)
     Route: 058
  17. HUMIRA [Suspect]
     Active Substance: ADALIMUMAB
     Dosage: 80 MILLIGRAM IN A DAY (START DATE: 20-AUG-2019, STOP DATE: 21-AUG-2019)
     Route: 058
     Dates: end: 20190821
  18. HUMIRA [Suspect]
     Active Substance: ADALIMUMAB
     Dosage: 80 MILLIGRAM, SINGLE DOSE (START DATE: 04-SEP-2019, STOP DATE: 04-SEP-2019)
     Route: 058
     Dates: end: 20190904
  19. HUMIRA [Suspect]
     Active Substance: ADALIMUMAB
     Dosage: 40 MILLIGRAM, EVERY 2 WEEK (START DATE: 18-SEP-2019)
     Route: 058
  20. HUMIRA [Suspect]
     Active Substance: ADALIMUMAB
     Dosage: 40 MILLIGRAM, ONCE A WEEK, (CUMULATIVE DOSE TO FIRST REACTION: 1840 MG) (START DATE: 07-MAY-2018, ST
     Route: 058
  21. HUMIRA [Suspect]
     Active Substance: ADALIMUMAB
     Dosage: 80 MILLIGRAM, QD (CUMULATIVE DOSE TO FIRST REACTION: 240 MG) (START DATE: 18-SEP-2019, STOP DATE: 21
     Route: 058
  22. DICYCLOMINE HYDROCHLORIDE [Concomitant]
     Active Substance: DICYCLOMINE HYDROCHLORIDE
     Indication: Crohn^s disease
     Dosage: 30 MILLIGRAM, PER DAY (START DATE:01-DEC-2014)
     Route: 048
  23. DICYCLOMINE HYDROCHLORIDE [Concomitant]
     Active Substance: DICYCLOMINE HYDROCHLORIDE
     Dosage: 10 MILLIGRAM, PER DAY (START DATE:01-DEC-2014)
     Route: 065
  24. DOMPERIDONE MALEATE [Concomitant]
     Active Substance: DOMPERIDONE MALEATE
     Indication: Vomiting
     Dosage: UNK
     Route: 065
  25. DOMPERIDONE MALEATE [Concomitant]
     Active Substance: DOMPERIDONE MALEATE
     Indication: Nausea
     Dosage: UNK
     Route: 065
  26. DOMPERIDONE MALEATE [Concomitant]
     Active Substance: DOMPERIDONE MALEATE
     Indication: Gastrooesophageal reflux disease
     Dosage: 30 ML PER DAY
     Route: 048
     Dates: start: 20190308
  27. DOMPERIDONE MALEATE [Concomitant]
     Active Substance: DOMPERIDONE MALEATE
     Indication: Crohn^s disease
     Dosage: 30 MILLIGRAM, QD, 10 MG, TID (START DATE: 01-JUN-2020, STOP DATE: 08-JUN-2020)
     Route: 048
  28. DOMPERIDONE MALEATE [Concomitant]
     Active Substance: DOMPERIDONE MALEATE
     Dosage: 30 MILLIGRAM, QD, (START DATE: 01-JUN-2020, STOP DATE: 08-JUN-2020)
     Route: 048
  29. BUTYLSCOPOLAMINE BROMIDE [Concomitant]
     Active Substance: BUTYLSCOPOLAMINE BROMIDE
     Indication: Crohn^s disease
     Dosage: 20 MG, AS NECESSARY (START DATE: 25-FEB-2019, STOP DATE: 25-FEB-2019)
     Route: 048
  30. BUTYLSCOPOLAMINE BROMIDE [Concomitant]
     Active Substance: BUTYLSCOPOLAMINE BROMIDE
     Indication: Abdominal pain
     Dosage: 30 MG PER DAY (START DATE: 02-MAR-2019, STOP DATE: 14-MAR-2019)
     Route: 042
  31. BUTYLSCOPOLAMINE BROMIDE [Concomitant]
     Active Substance: BUTYLSCOPOLAMINE BROMIDE
     Indication: Prophylaxis
     Dosage: 30 MG PER DAY (START DATE:15-MAR-2019)
     Route: 042
  32. BUTYLSCOPOLAMINE BROMIDE [Concomitant]
     Active Substance: BUTYLSCOPOLAMINE BROMIDE
     Dosage: 10 MILLIGRAM, PRN (START DATE: 07-APR-2019, STOP DATE: 27-JAN-2020)
     Route: 048
  33. BUTYLSCOPOLAMINE BROMIDE [Concomitant]
     Active Substance: BUTYLSCOPOLAMINE BROMIDE
     Dosage: 20 MILLIGRAM, PRN (START DATE:19-JUN-2020)
     Route: 042
  34. BUTYLSCOPOLAMINE BROMIDE [Concomitant]
     Active Substance: BUTYLSCOPOLAMINE BROMIDE
     Dosage: UNK
     Route: 065
  35. BUTYLSCOPOLAMINE BROMIDE [Concomitant]
     Active Substance: BUTYLSCOPOLAMINE BROMIDE
     Dosage: UNK (CUMULATIVE DOSE TO FIRST REACTION: 2950 MG)
     Route: 065
  36. BUTYLSCOPOLAMINE BROMIDE [Concomitant]
     Active Substance: BUTYLSCOPOLAMINE BROMIDE
     Dosage: 20 MILLIGRAM, PRN (CUMULATIVE DOSE TO FIRST REACTION: 2950 MG) (START DATE:19-JUN-2020)
     Route: 042
  37. ONDANSETRON [Concomitant]
     Active Substance: ONDANSETRON
     Indication: Nausea
     Dosage: 10.72 MILLIGRAM, PER DAY
     Route: 048
     Dates: start: 20190308, end: 20190311
  38. ONDANSETRON [Concomitant]
     Active Substance: ONDANSETRON
     Indication: Vomiting
     Dosage: 18 MILLIGRAM, PER DAY
     Route: 048
     Dates: start: 20190311
  39. ONDANSETRON [Concomitant]
     Active Substance: ONDANSETRON
     Dosage: 16 MILLIGRAM, PER DAY (CUMULATIVE DOSE TO FIRST REACTION: 4416.0 MG) (START DATE:01-JUL-2019)
     Route: 048
  40. ONDANSETRON [Concomitant]
     Active Substance: ONDANSETRON
     Dosage: UNK
     Route: 065
  41. ONDANSETRON [Concomitant]
     Active Substance: ONDANSETRON
     Dosage: 8 MILLIGRAM, QD (CUMULATIVE DOSE TO FIRST REACTION: 2208.0 MG) (START DATE:01-JUL-2019)
     Route: 048
  42. GABAPENTIN [Concomitant]
     Active Substance: GABAPENTIN
     Indication: Pain management
     Dosage: 600 MILLIGRAM, PER DAY
     Route: 048
     Dates: start: 20190305, end: 20190321
  43. GABAPENTIN [Concomitant]
     Active Substance: GABAPENTIN
     Dosage: 900 MILLIGRAM, PER DAY
     Route: 048
     Dates: start: 20190321
  44. NEOCATE JUNIOR [Concomitant]
     Indication: Crohn^s disease
     Dosage: 1800 MILLILITRE, QD
     Route: 065
     Dates: start: 20190304
  45. CARBOHYDRATES\FATTY ACIDS\MINERALS\PROTEIN\VITAMINS [Concomitant]
     Active Substance: CARBOHYDRATES\FATTY ACIDS\MINERALS\PROTEIN\VITAMINS
     Indication: Crohn^s disease
     Dosage: 1400 MILLILITER, PER DAY
     Dates: start: 20171120, end: 20180103
  46. CARBOHYDRATES\FATTY ACIDS\MINERALS\PROTEIN\VITAMINS [Concomitant]
     Active Substance: CARBOHYDRATES\FATTY ACIDS\MINERALS\PROTEIN\VITAMINS
     Dosage: 1400 MILLILITER, PER DAY
     Dates: start: 20180501, end: 20180613
  47. CARBOHYDRATES\FATTY ACIDS\MINERALS\PROTEIN\VITAMINS [Concomitant]
     Active Substance: CARBOHYDRATES\FATTY ACIDS\MINERALS\PROTEIN\VITAMINS
     Dosage: 1400 MILLILITER, PER DAY
     Dates: start: 20181005, end: 20181223
  48. CARBOHYDRATES\FATTY ACIDS\MINERALS\PROTEIN\VITAMINS [Concomitant]
     Active Substance: CARBOHYDRATES\FATTY ACIDS\MINERALS\PROTEIN\VITAMINS
     Dosage: 1555 MILLILITER, PER DAY
     Dates: start: 20190220, end: 20190303
  49. SODIUM PHOSPHATE, MONOBASIC, ANHYDROUS [Concomitant]
     Active Substance: SODIUM PHOSPHATE, MONOBASIC, ANHYDROUS
     Indication: Mineral supplementation
     Dosage: 64 MILLIMOLE, PER DAY
     Route: 048
     Dates: start: 20190225, end: 20190227
  50. SODIUM PHOSPHATE, MONOBASIC, ANHYDROUS [Concomitant]
     Active Substance: SODIUM PHOSPHATE, MONOBASIC, ANHYDROUS
     Dosage: 96 MILLIMOLE, PER DAY
     Route: 048
     Dates: start: 20190301, end: 20190308
  51. SODIUM PHOSPHATE, MONOBASIC, ANHYDROUS [Concomitant]
     Active Substance: SODIUM PHOSPHATE, MONOBASIC, ANHYDROUS
     Dosage: 48 MILLIMOLE, PER DAY
     Route: 048
     Dates: start: 20190308, end: 20190312
  52. HYLO FORTE [Concomitant]
     Indication: Dry eye
     Dosage: UNK, AS NECESSARY
     Route: 047
     Dates: start: 20140904
  53. AMITRIPTYLINE [Concomitant]
     Active Substance: AMITRIPTYLINE
     Indication: Relaxation therapy
     Dosage: 50 MILLIGRAM, AT BED TIME
     Route: 048
     Dates: start: 20150827
  54. AMITRIPTYLINE [Concomitant]
     Active Substance: AMITRIPTYLINE
     Indication: Sleep disorder
     Dosage: UNK
     Route: 065
  55. POLYETHYLENE GLYCOLS [Concomitant]
     Active Substance: POLYETHYLENE GLYCOLS
     Indication: Constipation
     Dosage: 2 PER DAY 1 TO 2 SACHETS
     Route: 048
     Dates: start: 20190301
  56. OMEPRAZOLE [Concomitant]
     Active Substance: OMEPRAZOLE
     Indication: Gastritis
     Dosage: 20 MILLIGRAM, PER DAY
     Route: 048
     Dates: start: 20130213, end: 20190315
  57. OMEPRAZOLE [Concomitant]
     Active Substance: OMEPRAZOLE
     Dosage: 10 MILLIGRAM, PER DAY
     Route: 048
     Dates: start: 20190316, end: 20190327
  58. TRAMADOL [Concomitant]
     Active Substance: TRAMADOL
     Indication: Pain management
     Dosage: 150 MILLIGRAM, PER DAY
     Route: 041
     Dates: start: 20190302, end: 20190314
  59. TRAMADOL [Concomitant]
     Active Substance: TRAMADOL
     Dosage: 150 MILLIGRAM, PER DAY
     Route: 048
     Dates: start: 20190315
  60. FOLIC ACID [Concomitant]
     Active Substance: FOLIC ACID
     Indication: Prophylaxis of nausea and vomiting
     Dosage: 5 MILLIGRAM, ONCE A WEEK
     Route: 048
     Dates: start: 20181018
  61. FOLIC ACID [Concomitant]
     Active Substance: FOLIC ACID
     Indication: Vitamin supplementation
     Dosage: UNK
     Route: 065
  62. FOLIC ACID [Concomitant]
     Active Substance: FOLIC ACID
     Dosage: 5 MILLIGRAM, ONCE A WEEK (START DATE: 29-JUN-2019)
     Route: 048
  63. FOLIC ACID [Concomitant]
     Active Substance: FOLIC ACID
     Dosage: 5 MILLIGRAM, ONCE A WEEK (START DATE: 29-JUN-2019)
     Route: 048
  64. SODIUM FEREDETATE [Concomitant]
     Active Substance: SODIUM FEREDETATE
     Indication: Mineral supplementation
     Dosage: 15 MILLIGRAM, UNK
     Route: 048
     Dates: start: 20140425
  65. BISACODYL [Concomitant]
     Active Substance: BISACODYL
     Indication: Constipation
     Dosage: 5 MILLIGRAM, PER DAY
     Route: 048
     Dates: start: 20190327
  66. BISACODYL [Concomitant]
     Active Substance: BISACODYL
     Dosage: 5 MILLIGRAM, QD (START DATE:17-JUL-2020)
     Route: 054
  67. MELATONIN [Concomitant]
     Active Substance: MELATONIN
     Indication: Sleep disorder
     Dosage: 1 PER DAY (2-4 MG)
     Route: 048
     Dates: start: 20190305
  68. DIORALYTE                          /00386201/ [Concomitant]
     Indication: Fluid replacement
     Dosage: 1 DOSAGE FORM, AS NECESSARY
     Route: 048
     Dates: start: 20190303
  69. MOVICOL                            /01749801/ [Concomitant]
     Indication: Laxative supportive care
     Dosage: UNK
     Route: 065
     Dates: start: 20150811, end: 20190228
  70. MOVICOL                            /01749801/ [Concomitant]
     Indication: Constipation
     Dosage: 8 DOSAGE FORM, QD (START DATE:20-DEC-2019)
     Route: 048
     Dates: end: 20200207
  71. MOVICOL                            /01749801/ [Concomitant]
     Dosage: 8 DOSAGE FORM, QD 4 DOSAGE FORM, BID (CUMULATIVE DOSE TO FIRST REACTION: 800 {DF}) (START DATE:20-DE
     Route: 048
     Dates: end: 20200207
  72. FERINJECT [Concomitant]
     Active Substance: FERRIC CARBOXYMALTOSE
     Indication: Iron deficiency
     Dosage: UNK
     Route: 065
     Dates: start: 20190218, end: 20190218
  73. ACETAMINOPHEN [Concomitant]
     Active Substance: ACETAMINOPHEN
     Indication: Arthralgia
     Dosage: UNK
     Route: 065
  74. ACETAMINOPHEN [Concomitant]
     Active Substance: ACETAMINOPHEN
     Indication: Headache
     Dosage: UNK
     Route: 065
     Dates: start: 20181005, end: 20190220
  75. ACETAMINOPHEN [Concomitant]
     Active Substance: ACETAMINOPHEN
     Indication: Pain management
     Dosage: UNK
     Route: 065
     Dates: start: 20190227, end: 20190302
  76. ACETAMINOPHEN [Concomitant]
     Active Substance: ACETAMINOPHEN
     Indication: Abdominal pain
     Dosage: UNK
     Route: 065
     Dates: start: 20190302, end: 20190314
  77. ACETAMINOPHEN [Concomitant]
     Active Substance: ACETAMINOPHEN
     Indication: Pain
     Dosage: UNK
     Route: 065
     Dates: start: 20190314, end: 20190327
  78. ACETAMINOPHEN [Concomitant]
     Active Substance: ACETAMINOPHEN
     Indication: Analgesic therapy
     Dosage: 1 MILLIGRAM, PRN,  AS NECESSARY (START DATE: 26 JUN 2019)
     Route: 048
  79. CODEINE [Concomitant]
     Active Substance: CODEINE
     Indication: Pain management
     Dosage: UNK
     Route: 065
     Dates: start: 20190225, end: 20190227
  80. INFLIXIMAB [Concomitant]
     Active Substance: INFLIXIMAB
     Indication: Crohn^s disease
     Dosage: UNK
     Route: 065
     Dates: start: 20130210, end: 20131111
  81. LACTULOSE [Concomitant]
     Active Substance: LACTULOSE
     Indication: Crohn^s disease
     Dosage: UNK
     Route: 065
     Dates: start: 20150707, end: 20150811
  82. LACTULOSE [Concomitant]
     Active Substance: LACTULOSE
     Indication: Constipation
     Dosage: 40 MILLIGRAM, QD (START DATE: 07-FEB-2020, STOP DATE:11-FEB-2020)
     Route: 048
  83. LACTULOSE [Concomitant]
     Active Substance: LACTULOSE
     Dosage: 40 MILLIGRAM, PER DAY 20 MG, BID (CUMULATIVE DOSE TO FIRST REACTION: 400 MG) (START DATE: 07-FEB-202
     Route: 065
  84. AMOXICILLIN AND CLAVULANATE POTASSIUM [Concomitant]
     Active Substance: AMOXICILLIN\CLAVULANATE POTASSIUM
     Indication: Crohn^s disease
     Dosage: UNK
     Route: 065
     Dates: start: 20190228, end: 20190302
  85. PREDNISOLONE [Concomitant]
     Active Substance: PREDNISOLONE
     Indication: Crohn^s disease
     Dosage: UNK
     Route: 065
     Dates: start: 20121101, end: 2013
  86. MORPHINE SULFATE [Concomitant]
     Active Substance: MORPHINE SULFATE
     Indication: Pain management
     Dosage: UNK
     Route: 065
     Dates: start: 20190228, end: 20190302
  87. FORTINI MULTI FIBRE [Concomitant]
     Indication: Nutritional supplementation
     Dosage: UNK
     Route: 065
  88. DOCUSATE SODIUM [Concomitant]
     Active Substance: DOCUSATE SODIUM
     Indication: Constipation
     Dosage: UNK
     Route: 065
     Dates: start: 20190226, end: 20190304
  89. DOCUSATE SODIUM [Concomitant]
     Active Substance: DOCUSATE SODIUM
     Dosage: 300 MILLIGRAM, PER DAY (START DATE: 02-AUG-2019)
     Route: 048
  90. DOCUSATE SODIUM [Concomitant]
     Active Substance: DOCUSATE SODIUM
     Dosage: 450 MILLIGRAM, QD (START DATE: 17-APR-2020, STOP DATE:14-JUL-2020)
     Route: 048
  91. DOCUSATE SODIUM [Concomitant]
     Active Substance: DOCUSATE SODIUM
     Dosage: 150 MILLIGRAM, TID (17 APR 2017)
     Route: 065
  92. SODIUM PICOSULFATE [Concomitant]
     Active Substance: SODIUM PICOSULFATE
     Indication: Laxative supportive care
     Dosage: 20 MILLIGRAM PER DAY
     Route: 048
     Dates: start: 20190304, end: 20190308
  93. SODIUM PICOSULFATE [Concomitant]
     Active Substance: SODIUM PICOSULFATE
     Indication: Constipation
     Dosage: 10 MILLIGRAM, PER DAY
     Route: 048
     Dates: start: 20190308, end: 20190314
  94. SODIUM PICOSULFATE [Concomitant]
     Active Substance: SODIUM PICOSULFATE
     Dosage: 20 MILLIGRAM, PER DAY
     Route: 048
     Dates: start: 20190315, end: 20190320
  95. SODIUM PICOSULFATE [Concomitant]
     Active Substance: SODIUM PICOSULFATE
     Dosage: 30 MILLIGRAM, QD (CUMULATIVE DOSE TO FIRST REACTION: 5810 MG)
     Route: 048
     Dates: start: 20190320, end: 20190617
  96. SODIUM PICOSULFATE [Concomitant]
     Active Substance: SODIUM PICOSULFATE
     Dosage: 20 MILLIGRAM PER DAY (START DATE: 09-JUL-2019)
     Route: 048
  97. SODIUM PICOSULFATE [Concomitant]
     Active Substance: SODIUM PICOSULFATE
     Dosage: 20 MILLIGRAM, PER DAY 10 MG, BID, (CUMULATIVE DOSE TO FIRST REACTION: 5810 MG)
     Route: 048
     Dates: start: 20190315, end: 20190320
  98. SODIUM PICOSULFATE [Concomitant]
     Active Substance: SODIUM PICOSULFATE
     Dosage: 10 MILLIGRAM, 5 MG BID (CUMULATIVE DOSE TO FIRST REACTION: 5810 MG)
     Route: 048
     Dates: start: 20190308
  99. SODIUM PICOSULFATE [Concomitant]
     Active Substance: SODIUM PICOSULFATE
     Dosage: 20 MILLIGRAM, QD (CUMULATIVE DOSE TO FIRST REACTION: 5810 MG) (START DATE: 04-MAR-2020)
     Route: 048
     Dates: end: 20200308
  100. SODIUM PICOSULFATE [Concomitant]
     Active Substance: SODIUM PICOSULFATE
     Dosage: 20 MILLIGRAM, QD (CUMULATIVE DOSE TO FIRST REACTION: 5810 MG)
     Route: 048
     Dates: start: 20190315, end: 20190320
  101. SODIUM PICOSULFATE [Concomitant]
     Active Substance: SODIUM PICOSULFATE
     Dosage: 30 MILLIGRAM, 15 MG, BID (CUMULATIVE DOSE TO FIRST REACTION: 5810 MG)
     Route: 048
     Dates: start: 20190320, end: 20190617
  102. SODIUM PICOSULFATE [Concomitant]
     Active Substance: SODIUM PICOSULFATE
     Dosage: 10 MILLIGRAM, QD (CUMULATIVE DOSE TO FIRST REACTION: 5810 MG) (START DATE:08-MAR-2019, STOP DATE:14-
     Route: 048
  103. SODIUM PICOSULFATE [Concomitant]
     Active Substance: SODIUM PICOSULFATE
     Dosage: 20 MILLIGRAM, QD (CUMULATIVE DOSE TO FIRST REACTION: 5810 MG) (START DATE: 09-JUL-2019)
     Route: 048
  104. NUTRISON MULTIFIBRE/NUTRITIONAL SUPPLEMENT [Concomitant]
     Indication: Nutritional supplementation
     Dosage: 1800-2400 ML, OVER 24 YEARS (START DATE: 01-JUL-2019)
     Route: 050
  105. CHLORPHENIRAMINE MALEATE [Concomitant]
     Active Substance: CHLORPHENIRAMINE MALEATE
     Indication: Pruritus
     Dosage: 4 MILLIGRAM, PRN (START DATE: 04-JUL-2019)
     Route: 048
  106. CHLORPHENIRAMINE MALEATE [Concomitant]
     Active Substance: CHLORPHENIRAMINE MALEATE
     Dosage: UNK
     Route: 065
  107. FUSIDIC ACID [Concomitant]
     Active Substance: FUSIDIC ACID
     Indication: Skin infection
     Dosage: 6 PERCENT IN A DAY, 2 PERCENT , TID (START DATE: 16-JUL-2019)
     Route: 061
  108. FUSIDIC ACID [Concomitant]
     Active Substance: FUSIDIC ACID
     Dosage: 6 PERCENT, QD, IN A DAY (START DATE: 16-JUL-2019)
     Route: 061
  109. BETNOVATE [Concomitant]
     Active Substance: BETAMETHASONE
     Indication: Seborrhoeic dermatitis
     Dosage: UNK, ALTERNATE DAYS FOR TWO WEEKS, THEN ONCE WEEKLY(AS DIRECTED) (START DATE: 28-NOV-2019)
     Route: 061
  110. POLYETHYLENE GLYCOL 3350\POTASSIUM CHLORIDE\SODIUM BICARBONATE\SODIUM [Concomitant]
     Active Substance: POLYETHYLENE GLYCOL 3350\POTASSIUM CHLORIDE\SODIUM BICARBONATE\SODIUM CHLORIDE
     Indication: Constipation
     Dosage: 2, PER DAY 1-2 SACHETS (START DATE: 05-AUG-2019, STOP DATE:12-AUG-2019)
     Route: 048
  111. POLYETHYLENE GLYCOL 3350\POTASSIUM CHLORIDE\SODIUM BICARBONATE\SODIUM [Concomitant]
     Active Substance: POLYETHYLENE GLYCOL 3350\POTASSIUM CHLORIDE\SODIUM BICARBONATE\SODIUM CHLORIDE
     Dosage: 8 DOSAGE FORM, QD (1-2 SACHETS) (START DATE: 13-AUG-2019, STOP DATE:19-DEC-2019)
     Route: 048
  112. POLYETHYLENE GLYCOL 3350\POTASSIUM CHLORIDE\SODIUM BICARBONATE\SODIUM [Concomitant]
     Active Substance: POLYETHYLENE GLYCOL 3350\POTASSIUM CHLORIDE\SODIUM BICARBONATE\SODIUM CHLORIDE
     Dosage: 8 DOSAGE FORM, QD (START DATE: 11-FEB-2020, STOP DATE:16-APR-2020)
     Route: 048
  113. POLYETHYLENE GLYCOL 3350\POTASSIUM CHLORIDE\SODIUM BICARBONATE\SODIUM [Concomitant]
     Active Substance: POLYETHYLENE GLYCOL 3350\POTASSIUM CHLORIDE\SODIUM BICARBONATE\SODIUM CHLORIDE
     Dosage: 2, PER DAY, DOSE:1-4 SACHETS (START DATE:22-APR-2020, STOP DATE:20-MAY-2020)
     Route: 048
  114. GAVISCON ADVANCED [Concomitant]
     Indication: Dyspepsia
     Dosage: UNK
     Route: 065
  115. GAVISCON ADVANCED [Concomitant]
     Indication: Gastrooesophageal reflux disease
     Dosage: 30 MILLIGRAM, QD, 10 MG, TID (START DATE: 02-AUG-2019)
     Route: 048
  116. GAVISCON ADVANCED [Concomitant]
     Dosage: 30 MILLIGRAM, QD, (START DATE: 02-AUG-2019)
     Route: 048
  117. RELAXIT [CALCIUM SILICATE;LECITHIN;POTASSIUM BITARTRATE;SODIUM BICARBO [Concomitant]
     Indication: Constipation
     Dosage: 5 MILLIGRAM, QD (START DATE: 21-APR-2020)
     Route: 054
  118. RELAXIT [CALCIUM SILICATE;LECITHIN;POTASSIUM BITARTRATE;SODIUM BICARBO [Concomitant]
     Dosage: 5 MILLILITER, PRN, MICRO ENEMA ONCE AT NIGHT AS REQUIRED , ENEMA (START DATE: 22-AUG-2019, STOP DATE
     Route: 054
  119. KETOCONAZOLE [Concomitant]
     Active Substance: KETOCONAZOLE
     Indication: Seborrhoeic dermatitis
     Dosage: 2, 1 WEEK, AS DIRECTED (START DATE: 28-NOV-2019)
     Route: 061
  120. KETOCONAZOLE [Concomitant]
     Active Substance: KETOCONAZOLE
     Dosage: 1 UNK, ONCE A WEEK, 2 UNK, QW (AS DIRECTED) (START DATE: 28-NOV-2019)
     Route: 061
  121. SODIUM PHOSPHATE [Concomitant]
     Active Substance: SODIUM PHOSPHATE
     Indication: Constipation
     Dosage: 100 MILLIGRAM, SINGLE DOSE, ENEMA (START DATE:11-FEB-2020, STOP DATE:11-FEB-2020)
     Route: 054

REACTIONS (4)
  - Constipation [Recovered/Resolved]
  - Impetigo [Recovered/Resolved]
  - Crohn^s disease [Recovered/Resolved]
  - Off label use [Unknown]

NARRATIVE: CASE EVENT DATE: 20190407
